FAERS Safety Report 21776967 (Version 1)
Quarter: 2022Q4

REPORT INFORMATION
  Report Type: Report from Study
  Country: US (occurrence: US)
  Receive Date: 20221226
  Receipt Date: 20221226
  Transmission Date: 20230112
  Serious: No
  Sender: FDA-Public Use
  Company Number: US-ABBVIE-22K-163-4447339-00

PATIENT
  Age: 28 Year
  Sex: Female

DRUGS (6)
  1. HUMIRA [Suspect]
     Active Substance: ADALIMUMAB
     Indication: Hidradenitis
     Dosage: CITRATE FREE, FORM STRENGTH: 40 MILLIGRAM
     Route: 058
  2. HUMIRA [Suspect]
     Active Substance: ADALIMUMAB
     Indication: Crohn^s disease
     Route: 058
  3. HUMIRA [Suspect]
     Active Substance: ADALIMUMAB
     Indication: Rheumatoid arthritis
  4. PFIZER-BIONTECH COVID-19 VACCINE [Concomitant]
     Active Substance: TOZINAMERAN
     Indication: COVID-19 immunisation
     Dosage: TIME INTERVAL: 1 TOTAL: FIRST DOSE
     Route: 030
     Dates: start: 20210308, end: 20210308
  5. PFIZER-BIONTECH COVID-19 VACCINE [Concomitant]
     Active Substance: TOZINAMERAN
     Indication: COVID-19 immunisation
     Dosage: TIME INTERVAL: 1 TOTAL: SECOND DOSE
     Route: 030
     Dates: start: 20210405, end: 20210405
  6. PFIZER-BIONTECH COVID-19 VACCINE [Concomitant]
     Active Substance: TOZINAMERAN
     Indication: COVID-19 immunisation
     Dosage: TIME INTERVAL: 1 TOTAL: COVID BOOSTER VACCINE
     Route: 030
     Dates: start: 20211029, end: 20211029

REACTIONS (16)
  - Abdominal pain [Not Recovered/Not Resolved]
  - Decreased appetite [Recovered/Resolved]
  - Gastrointestinal sounds abnormal [Not Recovered/Not Resolved]
  - Constipation [Recovered/Resolved]
  - Loss of personal independence in daily activities [Unknown]
  - Nausea [Not Recovered/Not Resolved]
  - Fatigue [Not Recovered/Not Resolved]
  - Stress [Unknown]
  - Flatulence [Recovered/Resolved]
  - Insomnia [Recovered/Resolved]
  - Anxiety [Not Recovered/Not Resolved]
  - Depressed mood [Not Recovered/Not Resolved]
  - Abdominal discomfort [Recovering/Resolving]
  - Abdominal distension [Recovered/Resolved]
  - Abdominal pain upper [Recovering/Resolving]
  - Diarrhoea [Not Recovered/Not Resolved]

NARRATIVE: CASE EVENT DATE: 20220601
